FAERS Safety Report 14421090 (Version 2)
Quarter: 2018Q2

REPORT INFORMATION
  Report Type: Not Available
  Country: US (occurrence: US)
  Receive Date: 20180122
  Receipt Date: 20180419
  Transmission Date: 20180711
  Serious: No
  Sender: FDA-Public Use
  Company Number: US-NEUROCRINE BIOSCIENCES INC.-2018NBI00048

PATIENT
  Age: 56 Year
  Sex: Female

DRUGS (22)
  1. ARMODAFINIL. [Concomitant]
     Active Substance: ARMODAFINIL
     Dosage: 1/2 TABLET BID
  2. HYOSCYAMINE. [Concomitant]
     Active Substance: HYOSCYAMINE
     Dosage: Q4H PRN
     Route: 060
  3. TRAZODONE [Concomitant]
     Active Substance: TRAZODONE HYDROCHLORIDE
     Dosage: AT NIGHT
  4. INGREZZA [Suspect]
     Active Substance: VALBENAZINE
     Route: 048
     Dates: start: 20171103, end: 20171228
  5. ASCORBIC ACID. [Concomitant]
     Active Substance: ASCORBIC ACID
  6. DILTIAZEM ER [Concomitant]
     Active Substance: DILTIAZEM
  7. TETRABENAZINE. [Concomitant]
     Active Substance: TETRABENAZINE
  8. INGREZZA [Suspect]
     Active Substance: VALBENAZINE
     Indication: TARDIVE DYSKINESIA
     Route: 048
     Dates: start: 20171026, end: 20171102
  9. SUMATRIPTAN. [Concomitant]
     Active Substance: SUMATRIPTAN
  10. CLONAZEPAM. [Concomitant]
     Active Substance: CLONAZEPAM
  11. DULERA [Concomitant]
     Active Substance: FORMOTEROL FUMARATE DIHYDRATE\MOMETASONE FUROATE
  12. ZOFRAN [Concomitant]
     Active Substance: ONDANSETRON HYDROCHLORIDE
     Dosage: Q8H PRN
  13. MIRALAX [Concomitant]
     Active Substance: POLYETHYLENE GLYCOL 3350
  14. FIORICET [Concomitant]
     Active Substance: ACETAMINOPHEN\BUTALBITAL\CAFFEINE
     Dosage: 50-325-40 MG ONE TABLET DAILY
  15. DOXYCYCLINE. [Concomitant]
     Active Substance: DOXYCYCLINE
  16. AMBIEN [Concomitant]
     Active Substance: ZOLPIDEM TARTRATE
     Dosage: AT NIGHT
  17. AMITRIPTYLINE [Concomitant]
     Active Substance: AMITRIPTYLINE
  18. LITHIUM. [Concomitant]
     Active Substance: LITHIUM
  19. SIMVASTATIN. [Concomitant]
     Active Substance: SIMVASTATIN
  20. VITAMIN D [Concomitant]
     Active Substance: CHOLECALCIFEROL
  21. SINGULAIR [Concomitant]
     Active Substance: MONTELUKAST SODIUM
  22. LEXAPRO [Concomitant]
     Active Substance: ESCITALOPRAM OXALATE

REACTIONS (3)
  - Dizziness [Unknown]
  - Somnolence [Unknown]
  - Feeling abnormal [Unknown]

NARRATIVE: CASE EVENT DATE: 201711
